FAERS Safety Report 23642800 (Version 2)
Quarter: 2024Q2

REPORT INFORMATION
  Report Type: Report from Study
  Country: US (occurrence: US)
  Receive Date: 20240318
  Receipt Date: 20240408
  Transmission Date: 20240716
  Serious: Yes (Hospitalization)
  Sender: FDA-Public Use
  Company Number: US-Eisai-EC-2024-157004

PATIENT
  Age: 81 Year
  Sex: Female

DRUGS (3)
  1. LENVIMA [Suspect]
     Active Substance: LENVATINIB
     Indication: Endometrial neoplasm
     Dosage: MISSED 3 DAYS
     Route: 048
     Dates: end: 202402
  2. LENVIMA [Suspect]
     Active Substance: LENVATINIB
     Dosage: MISSED 3 DAYS
     Route: 048
     Dates: start: 202403, end: 2024
  3. KEYTRUDA [Concomitant]
     Active Substance: PEMBROLIZUMAB

REACTIONS (9)
  - Gastrointestinal infection [Unknown]
  - Constipation [Recovering/Resolving]
  - Muscle atrophy [Recovering/Resolving]
  - Weight decreased [Recovering/Resolving]
  - Stomatitis [Recovering/Resolving]
  - Decreased appetite [Recovering/Resolving]
  - Cough [Unknown]
  - Fatigue [Unknown]
  - Nausea [Unknown]

NARRATIVE: CASE EVENT DATE: 20240101
